FAERS Safety Report 5097914-9 (Version None)
Quarter: 2006Q3

REPORT INFORMATION
  Report Type: 
  Country: None (occurrence: None)
  Receive Date: 20060905
  Receipt Date: 20060905
  Transmission Date: 20061208
  Serious: No
  Sender: FDA-Public Use
  Company Number: None

PATIENT
  Age: 42 Year
  Sex: Female
  Weight: 56.6996 kg

DRUGS (1)
  1. YASMIN [Suspect]
     Indication: CONTRACEPTION
     Dosage: 1 DAILY PO
     Route: 048

REACTIONS (6)
  - ALOPECIA [None]
  - ANGER [None]
  - MOOD SWINGS [None]
  - MUSCLE SPASMS [None]
  - PARAESTHESIA [None]
  - WEIGHT DECREASED [None]
